FAERS Safety Report 5394498-2 (Version None)
Quarter: 2007Q3

REPORT INFORMATION
  Report Type: 
  Country: None (occurrence: None)
  Receive Date: 20070718
  Receipt Date: 20070515
  Transmission Date: 20080115
  Serious: Yes (Death, Other)
  Sender: FDA-Public Use
  Company Number: 2006118831

PATIENT
  Sex: Female

DRUGS (3)
  1. CELECOXIB [Suspect]
     Indication: ARTHRITIS
     Dosage: (200 MG, 3 IN 1 D), ORAL
     Route: 048
     Dates: start: 19990828, end: 20050201
  2. CELECOXIB [Suspect]
     Indication: PAIN
     Dosage: (200 MG, 3 IN 1 D), ORAL
     Route: 048
     Dates: start: 19990828, end: 20050201
  3. VIOXX [Suspect]
     Dosage: ORAL
     Route: 048
     Dates: start: 20020101, end: 20050201

REACTIONS (1)
  - CEREBROVASCULAR ACCIDENT [None]
